FAERS Safety Report 20394099 (Version 1)
Quarter: 2022Q1

REPORT INFORMATION
  Report Type: Report from Study
  Country: RO (occurrence: RO)
  Receive Date: 20220129
  Receipt Date: 20220129
  Transmission Date: 20220423
  Serious: Yes (Other)
  Sender: FDA-Public Use
  Company Number: RO-NOVARTISPH-NVSC2022RO018660

PATIENT
  Age: 66 Year
  Sex: Male

DRUGS (1)
  1. COSENTYX [Suspect]
     Active Substance: SECUKINUMAB
     Indication: Ankylosing spondylitis
     Dosage: 150 MG, QMO (INJECTION)
     Route: 065
     Dates: start: 20210224, end: 20211225

REACTIONS (1)
  - Prostatic adenoma [Not Recovered/Not Resolved]

NARRATIVE: CASE EVENT DATE: 20220101
